FAERS Safety Report 9017621 (Version 3)
Quarter: 2013Q1

REPORT INFORMATION
  Report Type: Report from Study
  Country: JP (occurrence: JP)
  Receive Date: 20130117
  Receipt Date: 20130225
  Transmission Date: 20140127
  Serious: Yes (Other)
  Sender: FDA-Public Use
  Company Number: JP-OTSUKA-JP-2013-10078

PATIENT
  Age: 53 Year
  Sex: Male
  Weight: 72 kg

DRUGS (47)
  1. SAMSCA [Suspect]
     Indication: FLUID RETENTION
     Dosage: 15 MG MILLIGRAM(S), QPM
     Route: 050
     Dates: start: 20121206, end: 20121206
  2. SAMSCA [Suspect]
     Dosage: 15 MG MILLIGRAM(S), QAM
     Route: 050
     Dates: start: 20121207, end: 20121209
  3. SOLDEM 1 [Concomitant]
     Indication: FLUID REPLACEMENT
     Dosage: 500 ML MILLILITRE(S), DAILY DOSE
     Route: 042
     Dates: end: 20121205
  4. MAGNESIUM SULFATE HYDRATE [Concomitant]
     Indication: PROPHYLAXIS
     Dosage: 40 ML MILLILITRE(S), DAILY DOSE
     Route: 042
     Dates: end: 20121205
  5. SOLDEM 3A [Concomitant]
     Indication: FLUID REPLACEMENT
     Dosage: 500 ML MILLILITRE(S), DAILY DOSE
     Route: 042
     Dates: end: 20121205
  6. FENTANYL [Concomitant]
     Indication: INDUCTION OF ANAESTHESIA
     Dosage: 2.6 MG MILLIGRAM(S), DAILY DOSE
     Route: 042
     Dates: end: 20121205
  7. ULTIVA [Concomitant]
     Indication: INDUCTION OF ANAESTHESIA
     Dosage: 10 MG MILLIGRAM(S), DAILY DOSE
     Route: 042
     Dates: end: 20121205
  8. BACTROBAN [Concomitant]
     Indication: PROPHYLAXIS
     Dosage: 0.5 G GRAM(S), DAILY DOSE
     Route: 045
     Dates: end: 20121205
  9. GASPORT [Concomitant]
     Indication: PROPHYLAXIS
     Dosage: 20 MG MILLIGRAM(S), DAILY DOSE
     Route: 042
     Dates: end: 20121205
  10. MEYLON [Concomitant]
     Indication: PROPHYLAXIS
     Dosage: 250 ML MILLILITRE(S), DAILY DOSE
     Route: 042
     Dates: end: 20121205
  11. INDERAL [Concomitant]
     Indication: CARDIAC FAILURE
     Dosage: 2 MG MILLIGRAM(S), DAILY DOSE
     Route: 042
     Dates: end: 20121205
  12. PIPERACILLIN SODIUM [Concomitant]
     Indication: PROPHYLAXIS
     Dosage: 2 G GRAM(S), DAILY DOSE
     Route: 042
     Dates: end: 20121205
  13. CALCICOL [Concomitant]
     Indication: PROPHYLAXIS
     Dosage: 1 DF DOSAGE FORM, DAILY DOSE
     Route: 042
     Dates: end: 20121205
  14. KAYTWO N [Concomitant]
     Indication: PROPHYLAXIS
     Dosage: 10 MG MILLIGRAM(S), DAILY DOSE
     Route: 042
     Dates: end: 20121205
  15. PITRESSIN [Concomitant]
     Indication: CARDIAC FAILURE
     Dosage: 20 IU, DAILY DOSE
     Route: 042
     Dates: end: 20121205
  16. MEXITIL [Concomitant]
     Dosage: 125 MG MILLIGRAM(S), DAILY DOSE
     Route: 042
     Dates: end: 20121205
  17. KCL [Concomitant]
     Indication: PROPHYLAXIS
     Dosage: 50 ML MILLILITRE(S), DAILY DOSE
     Route: 042
     Dates: end: 20121205
  18. SEISHOKU KIT [Concomitant]
     Indication: MEDICATION DILUTION
     Dosage: 100 ML MILLILITRE(S), DAILY DOSE
     Route: 042
     Dates: end: 20121205
  19. NOVO PROTAMINE SULFATE [Concomitant]
     Indication: HEPARIN NEUTRALISATION THERAPY
     Dosage: 40 ML MILLILITRE(S), DAILY DOSE
     Route: 042
     Dates: end: 20121206
  20. SIGMART [Concomitant]
     Indication: PROPHYLAXIS
     Dosage: 48 MG MILLIGRAM(S), DAILY DOSE
     Route: 042
     Dates: end: 20121206
  21. HANP [Concomitant]
     Indication: CARDIAC FAILURE
     Dosage: 3000 MCG, DAILY DOSE
     Route: 042
     Dates: end: 20121206
  22. HUMULIN R [Concomitant]
     Dosage: 1 ML MILLILITRE(S), DAILY DOSE
     Route: 042
     Dates: end: 20121206
  23. CALCIUM CHLORIDE HYDRATE [Concomitant]
     Indication: PROPHYLAXIS
     Dosage: 20 ML MILLILITRE(S), DAILY DOSE
     Route: 042
     Dates: end: 20121206
  24. SAXIZON [Concomitant]
     Indication: PROPHYLAXIS
     Dosage: 500 MG MILLIGRAM(S), DAILY DOSE
     Route: 042
     Dates: end: 20121206
  25. SOLU MEDROL [Concomitant]
     Indication: PROPHYLAXIS
     Dosage: 500 MG MILLIGRAM(S), DAILY DOSE
     Route: 042
     Dates: end: 20121206
  26. TRANSAMIN [Concomitant]
     Indication: POST PROCEDURAL HAEMORRHAGE
     Dosage: 10 ML MILLILITRE(S), DAILY DOSE
     Route: 042
     Dates: end: 20121206
  27. HAPTOGLOBINS [Concomitant]
     Dosage: 100 ML MILLILITRE(S), DAILY DOSE
     Route: 042
     Dates: end: 20121206
  28. MILRINONE [Concomitant]
     Indication: CARDIAC FAILURE
     Dosage: 24 ML MILLILITRE(S), DAILY DOSE
     Route: 042
     Dates: end: 20121207
  29. ONOACT [Concomitant]
     Indication: CARDIAC FAILURE
     Dosage: 150 MG MILLIGRAM(S), DAILY DOSE
     Route: 042
     Dates: end: 20121208
  30. INOVAN [Concomitant]
     Indication: CARDIAC FAILURE
     Dosage: 48 ML MILLILITRE(S), DAILY DOSE
     Route: 042
     Dates: end: 20121208
  31. NORADRENALINE [Concomitant]
     Indication: CARDIAC FAILURE
     Dosage: 1.5 ML MILLILITRE(S), DAILY DOSE
     Route: 042
     Dates: end: 20121208
  32. SEFMAZON [Concomitant]
     Indication: PROPHYLAXIS
     Dosage: 2 G GRAM(S), DAILY DOSE
     Route: 042
  33. OMEPRAZOLE [Concomitant]
     Indication: PROPHYLAXIS
     Dosage: 20 MG MILLIGRAM(S), DAILY DOSE
     Route: 042
  34. SEISHOKU [Concomitant]
     Indication: MEDICATION DILUTION
     Dosage: 210 ML MILLILITRE(S), DAILY DOSE
     Route: 042
  35. GLUCOSE [Concomitant]
     Indication: MEDICATION DILUTION
     Dosage: 250 ML MILLILITRE(S), DAILY DOSE
     Route: 042
  36. ELASPOL [Concomitant]
     Indication: PROPHYLAXIS
     Dosage: 300 MG MILLIGRAM(S), DAILY DOSE
     Route: 042
  37. MIRACLID [Concomitant]
     Indication: PROPHYLAXIS
     Dosage: 9 ML MILLILITRE(S), DAILY DOSE
     Route: 042
  38. PROBITOR [Concomitant]
     Indication: PROPHYLAXIS
     Dosage: 1500 MG MILLIGRAM(S), DAILY DOSE
     Route: 042
  39. RADICUT [Concomitant]
     Indication: PROPHYLAXIS
     Dosage: 60 MG MILLIGRAM(S), DAILY DOSE
     Route: 042
  40. LASIX [Concomitant]
     Indication: CARDIAC FAILURE
     Dosage: 20 ML MILLILITRE(S), DAILY DOSE
     Route: 042
  41. MANNITOL [Concomitant]
     Indication: CARDIAC FAILURE
     Dosage: 80 ML MILLILITRE(S), DAILY DOSE
     Route: 042
  42. PROSTANDIN [Concomitant]
     Indication: PROPHYLAXIS
     Dosage: 1500 MCG, DAILY DOSE
     Route: 042
  43. BFLUID [Concomitant]
     Indication: FLUID REPLACEMENT
     Dosage: 500 ML MILLILITRE(S), DAILY DOSE
     Route: 042
     Dates: start: 20121206, end: 20121206
  44. BFLUID [Concomitant]
     Dosage: 1000 ML MILLILITRE(S), DAILY DOSE
     Route: 042
     Dates: start: 20121209, end: 20121209
  45. SULBACILLIN [Concomitant]
     Indication: PROPHYLAXIS
     Dosage: 3 G GRAM(S), DAILY DOSE
     Route: 042
     Dates: start: 20121206
  46. SALIPEX [Concomitant]
     Indication: PROPHYLAXIS
     Dosage: 24 ML MILLILITRE(S), DAILY DOSE
     Route: 042
     Dates: start: 20121208
  47. HEPARIN [Concomitant]
     Indication: INTRAOPERATIVE CARE
     Dosage: 15 KIU IU(1000S), DAILY DOSE
     Route: 042
     Dates: end: 20121206

REACTIONS (4)
  - Hypernatraemia [Recovered/Resolved]
  - Blood urea increased [Unknown]
  - Blood creatine phosphokinase increased [Unknown]
  - Alanine aminotransferase increased [Recovered/Resolved]
